FAERS Safety Report 25467335 (Version 1)
Quarter: 2025Q2

REPORT INFORMATION
  Report Type: Spontaneous
  Country: CA (occurrence: CA)
  Receive Date: 20250623
  Receipt Date: 20250623
  Transmission Date: 20250716
  Serious: Yes (Hospitalization, Other)
  Sender: TEVA
  Company Number: CA-TEVA-VS-3344536

PATIENT
  Age: 58 Year
  Sex: Female

DRUGS (10)
  1. CITALOPRAM [Suspect]
     Active Substance: CITALOPRAM
     Indication: Product used for unknown indication
     Route: 065
  2. QUETIAPINE [Suspect]
     Active Substance: QUETIAPINE
     Indication: Product used for unknown indication
     Route: 065
  3. QUETIAPINE [Suspect]
     Active Substance: QUETIAPINE
     Indication: Product used for unknown indication
     Route: 065
  4. ROSUVASTATIN [Suspect]
     Active Substance: ROSUVASTATIN
     Indication: Product used for unknown indication
     Route: 065
  5. MIRTAZAPINE [Suspect]
     Active Substance: MIRTAZAPINE
     Indication: Product used for unknown indication
     Route: 065
  6. RANITIDINE [Suspect]
     Active Substance: RANITIDINE
     Indication: Product used for unknown indication
     Route: 065
  7. HYDROCHLOROTHIAZIDE [Suspect]
     Active Substance: HYDROCHLOROTHIAZIDE
     Indication: Product used for unknown indication
     Route: 065
  8. CLONAZEPAM [Suspect]
     Active Substance: CLONAZEPAM
     Indication: Product used for unknown indication
     Route: 065
  9. CAMPRAL [Suspect]
     Active Substance: ACAMPROSATE CALCIUM
     Indication: Product used for unknown indication
     Route: 065
  10. ATENOLOL [Suspect]
     Active Substance: ATENOLOL
     Indication: Product used for unknown indication
     Dosage: ATENOLOL TABLETS, BP
     Route: 065

REACTIONS (6)
  - Nausea [Recovered/Resolved]
  - Electrocardiogram QT prolonged [Recovered/Resolved]
  - Ventricular fibrillation [Recovered/Resolved]
  - Malaise [Recovered/Resolved]
  - Hyperhidrosis [Recovered/Resolved]
  - Asthenia [Recovered/Resolved]
